FAERS Safety Report 21800067 (Version 1)
Quarter: 2022Q4

REPORT INFORMATION
  Report Type: Spontaneous
  Country: JP (occurrence: JP)
  Receive Date: 20221230
  Receipt Date: 20221230
  Transmission Date: 20230113
  Serious: Yes (Other)
  Sender: FDA-Public Use
  Company Number: JP-AMGEN-JPNSP2022173199

PATIENT
  Sex: Female

DRUGS (5)
  1. BLINCYTO [Suspect]
     Active Substance: BLINATUMOMAB
     Indication: Acute lymphocytic leukaemia recurrent
     Dosage: 5 MICROGRAM/SQ. METER/REPLACED EVERY 48 HOURS
     Route: 040
     Dates: start: 20221005, end: 20221007
  2. BLINCYTO [Suspect]
     Active Substance: BLINATUMOMAB
     Indication: Philadelphia chromosome positive
     Dosage: 5 MICROGRAM, QD
     Route: 040
     Dates: start: 20221008
  3. BLINCYTO [Suspect]
     Active Substance: BLINATUMOMAB
     Dosage: 15 MICROGRAM/SQ. METER
     Route: 040
     Dates: start: 202210
  4. ICLUSIG [Suspect]
     Active Substance: PONATINIB
     Indication: B precursor type acute leukaemia
     Dosage: 15 MILLIGRAM, QD
     Route: 065
     Dates: start: 20221102
  5. NITRIC ACID [Concomitant]
     Active Substance: NITRIC ACID

REACTIONS (8)
  - Subdural hygroma [Unknown]
  - Cerebellar infarction [Unknown]
  - Cytokine release syndrome [Recovered/Resolved]
  - Tumour lysis syndrome [Unknown]
  - Subdural abscess [Recovered/Resolved]
  - Subdural haemorrhage [Recovered/Resolved]
  - Anal fistula infection [Recovered/Resolved]
  - Pyrexia [Recovered/Resolved]

NARRATIVE: CASE EVENT DATE: 20220101
